FAERS Safety Report 21964455 (Version 1)
Quarter: 2023Q1

REPORT INFORMATION
  Report Type: Spontaneous
  Country: US (occurrence: None)
  Receive Date: 20230206
  Receipt Date: 20230206
  Transmission Date: 20230418
  Serious: No
  Sender: FDA-Public Use
  Company Number: None

PATIENT
  Age: 38 Year
  Sex: Female
  Weight: 44.2 kg

DRUGS (9)
  1. DEXTROAMPHET SACCHARAT, AMPHET ASPARTATE, DEXTROAMPHET SULFATE AND AMP [Suspect]
     Active Substance: AMPHETAMINE ASPARTATE\AMPHETAMINE SULFATE\DEXTROAMPHETAMINE SACCHARATE\DEXTROAMPHETAMINE SULFATE
     Indication: Attention deficit hyperactivity disorder
     Dosage: OTHER QUANTITY : 3 TABLET(S);?OTHER FREQUENCY : 2 IN AM/1 IN PM;?
     Route: 048
     Dates: start: 20230205, end: 20230206
  2. ADDERALL [Concomitant]
     Active Substance: AMPHETAMINE ASPARTATE\AMPHETAMINE SULFATE\DEXTROAMPHETAMINE SACCHARATE\DEXTROAMPHETAMINE SULFATE
  3. METFORMIN [Concomitant]
     Active Substance: METFORMIN HYDROCHLORIDE
  4. NORETHINDRONE [Concomitant]
     Active Substance: NORETHINDRONE
  5. PROPRANOLOL [Concomitant]
     Active Substance: PROPRANOLOL HYDROCHLORIDE
  6. VITAMIN B12 [Concomitant]
     Active Substance: CYANOCOBALAMIN
  7. VITAMIN D [Concomitant]
     Active Substance: VITAMIN D NOS
  8. OVASITOL [Concomitant]
  9. VEGETARIAN FIBER CHEWABLES [Concomitant]

REACTIONS (10)
  - Headache [None]
  - Pain in jaw [None]
  - Agitation [None]
  - Anxiety [None]
  - Product substitution issue [None]
  - Crying [None]
  - Fear [None]
  - Anger [None]
  - Product quality issue [None]
  - Therapeutic product effect decreased [None]

NARRATIVE: CASE EVENT DATE: 20230205
